FAERS Safety Report 9395140 (Version 2)
Quarter: 2013Q3

REPORT INFORMATION
  Report Type: Spontaneous
  Country: US (occurrence: US)
  Receive Date: 20130711
  Receipt Date: 20130827
  Transmission Date: 20140515
  Serious: Yes (Other)
  Sender: FDA-Public Use
  Company Number: PHEH2013US014437

PATIENT
  Sex: Male

DRUGS (12)
  1. STALEVO [Suspect]
     Indication: PARKINSON^S DISEASE
     Dosage: 6 DF, DAILY
     Route: 065
  2. CARBIDOPA LEVODOPA [Concomitant]
     Dosage: 6 DF, DAILY
     Route: 065
  3. REQUIP [Concomitant]
     Dosage: 6 DF, DAILY
     Route: 065
  4. LEVOTHYROXINE [Concomitant]
     Dosage: 300 MG, QD
     Route: 065
  5. DOXYCYCLINE [Concomitant]
     Dosage: 150 MG, BID
     Route: 065
  6. LASIX [Concomitant]
     Dosage: 40 MG, QD
     Route: 065
  7. POTASSIUM [Concomitant]
     Dosage: UNK UKN, UNK
     Route: 065
  8. XANAX [Concomitant]
     Dosage: 0.25 MG, QD
     Route: 065
  9. FLOMAX//TAMSULOSIN HYDROCHLORIDE [Concomitant]
     Dosage: UNK UKN, QD
     Route: 065
  10. CLARITIN-D [Concomitant]
     Dosage: UNK UKN, QD
     Route: 065
  11. MULTI-VIT [Concomitant]
     Dosage: UNK UKN, QD
     Route: 065
  12. STOOL SOFTENER [Concomitant]
     Dosage: UNK UKN, QD
     Route: 065

REACTIONS (3)
  - Akinesia [Unknown]
  - Drug ineffective [Unknown]
  - Drug administration error [Unknown]
